FAERS Safety Report 21976467 (Version 1)
Quarter: 2023Q1

REPORT INFORMATION
  Report Type: Spontaneous
  Country: US (occurrence: US)
  Receive Date: 20230210
  Receipt Date: 20230210
  Transmission Date: 20230418
  Serious: No
  Sender: FDA-Public Use
  Company Number: US-SA-SAC20230208000388

PATIENT
  Age: 69 Year
  Sex: Female

DRUGS (15)
  1. DUPIXENT [Suspect]
     Active Substance: DUPILUMAB
     Indication: Congenital hypogammaglobulinaemia
     Dosage: 300 MG
     Route: 065
  2. BACTRIM [Concomitant]
     Active Substance: SULFAMETHOXAZOLE\TRIMETHOPRIM
  3. GABAPENTIN [Concomitant]
     Active Substance: GABAPENTIN
  4. ACETAMINOPHEN\HYDROCODONE [Concomitant]
     Active Substance: ACETAMINOPHEN\HYDROCODONE
  5. IMMUNE ENHANCE [Concomitant]
  6. MELOXICAM [Concomitant]
     Active Substance: MELOXICAM
  7. TRAMADOL HCL [Concomitant]
     Active Substance: TRAMADOL HYDROCHLORIDE
  8. PROBIO [Concomitant]
  9. COLLAGEN [Concomitant]
     Active Substance: COLLAGEN
  10. PREDNISONE [Concomitant]
     Active Substance: PREDNISONE
  11. CLINDAMYCIN HYDROCHLORIDE [Concomitant]
     Active Substance: CLINDAMYCIN HYDROCHLORIDE
  12. LEVOFLOXACIN [Concomitant]
     Active Substance: LEVOFLOXACIN
  13. DEXAMETHASONE [Concomitant]
     Active Substance: DEXAMETHASONE
  14. VASTATIN [SIMVASTATIN] [Concomitant]
  15. CIPROFLOXACIN [Concomitant]
     Active Substance: CIPROFLOXACIN

REACTIONS (6)
  - Nasal congestion [Not Recovered/Not Resolved]
  - Secretion discharge [Not Recovered/Not Resolved]
  - Joint swelling [Not Recovered/Not Resolved]
  - Sinus disorder [Not Recovered/Not Resolved]
  - Upper respiratory tract infection [Unknown]
  - Product use in unapproved indication [Unknown]

NARRATIVE: CASE EVENT DATE: 20220101
